FAERS Safety Report 9111172 (Version 1)
Quarter: 2013Q1

REPORT INFORMATION
  Report Type: Spontaneous
  Country: US (occurrence: US)
  Receive Date: 20130219
  Receipt Date: 20130219
  Transmission Date: 20140127
  Serious: No
  Sender: FDA-Public Use
  Company Number: US-BRISTOL-MYERS SQUIBB COMPANY-16950545

PATIENT
  Age: 57 Year
  Sex: Male
  Weight: 99 kg

DRUGS (1)
  1. ORENCIA FOR INJ [Suspect]
     Indication: RHEUMATOID ARTHRITIS
     Dosage: 20ML OF STERILE WATER TO ONE 250MG VIAL 20ML OF STERILE WATER TO ONE 250MG VIAL
     Route: 042
     Dates: start: 20100317

REACTIONS (1)
  - Medication error [Unknown]
